FAERS Safety Report 21381687 (Version 3)
Quarter: 2022Q4

REPORT INFORMATION
  Report Type: Report from Study
  Country: US (occurrence: US)
  Receive Date: 20220927
  Receipt Date: 20221013
  Transmission Date: 20230113
  Serious: Yes (Hospitalization)
  Sender: FDA-Public Use
  Company Number: US-GBT-016557

PATIENT
  Age: 23 Year
  Sex: Male

DRUGS (16)
  1. OXBRYTA [Suspect]
     Active Substance: VOXELOTOR
     Indication: Sickle cell disease
     Dates: start: 20220408
  2. cholecalciferol (vitamin D3) 25 mcg (1,000 unit) tablet [Concomitant]
     Indication: Product used for unknown indication
     Route: 048
     Dates: start: 20220708
  3. cyclobenzaprine (Flexeril) 5 mg tablet [Concomitant]
     Indication: Sickle cell disease
     Dosage: TIME INTERVAL: 0.33333333 DAYS
     Route: 048
     Dates: start: 20220613, end: 20220713
  4. LISINOPRIL [Concomitant]
     Active Substance: LISINOPRIL
     Indication: Product used for unknown indication
     Route: 048
     Dates: start: 20220401
  5. folic acid (folvite) 1 mg tablet [Concomitant]
     Indication: Sickle cell disease
     Route: 048
     Dates: start: 20121214
  6. HYDROXYUREA [Concomitant]
     Active Substance: HYDROXYUREA
     Indication: Sickle cell disease
     Route: 048
     Dates: start: 20170719
  7. ergocalciferol (drisdol) 1,250 mcg (50,000 unit) capsule [Concomitant]
     Indication: Product used for unknown indication
     Route: 048
     Dates: start: 20150917, end: 20220728
  8. MOTRIN [Concomitant]
     Active Substance: IBUPROFEN
     Indication: Sickle cell disease
     Route: 048
     Dates: start: 20200402
  9. senna-docusate (pericolace) 8.6-50 mg tablet [Concomitant]
     Indication: Constipation
     Dosage: BID PRN
     Route: 048
     Dates: start: 20210423
  10. famotidine (Pepcid) 20 mg tablet [Concomitant]
     Indication: Sickle cell disease
     Route: 048
     Dates: start: 20220728
  11. sertraline (zoloft) 50 mg tablet [Concomitant]
     Indication: Anxiety
     Dosage: QD
     Route: 048
     Dates: start: 20200909
  12. mrophine (MS CONTIN) 60 mg 12 extended release tablet [Concomitant]
     Indication: Sickle cell disease
     Dosage: TIME INTERVAL: 0.04761905 DAYS
     Route: 048
     Dates: start: 20220522
  13. oxycodone IR (roxicodone) 15 mg immediate release tablet [Concomitant]
     Indication: Sickle cell disease
     Dosage: IMMEDIATE RELEASE TABLET
     Route: 048
     Dates: start: 20200923
  14. crizanlizumab-tmca (Adakveo) in NaCl 0.9% 100 mL infusion [Concomitant]
     Indication: Sickle cell disease
     Dosage: MONTHLY INFUSION
     Route: 042
     Dates: start: 20211217
  15. amoxicillin (Amoxil) 250 mg capsule [Concomitant]
     Indication: Prophylaxis
     Route: 048
     Dates: start: 20190322
  16. gabapentin (neurontin) 300 mg tablet [Concomitant]
     Route: 048
     Dates: start: 20220215, end: 20220613

REACTIONS (1)
  - Sickle cell anaemia with crisis [Recovered/Resolved]

NARRATIVE: CASE EVENT DATE: 20220724
